FAERS Safety Report 20735229 (Version 1)
Quarter: 2022Q2

REPORT INFORMATION
  Report Type: Other
  Country: KR (occurrence: None)
  Receive Date: 20220421
  Receipt Date: 20220421
  Transmission Date: 20220721
  Serious: Yes (Other)
  Sender: FDA-Public Use
  Company Number: KR-ROCHE-2968497

PATIENT
  Age: 75 Year
  Sex: Male
  Weight: 56.8 kg

DRUGS (18)
  1. ATEZOLIZUMAB [Suspect]
     Active Substance: ATEZOLIZUMAB
     Indication: Hepatocellular carcinoma
     Dosage: NEXT DOSE ON 16/MAR/2021, 05/APR/2021, 27/APR/2021, 18/MAY/2021, 08/JUN/2021, 30/JUN/2021, 30/JUL/20
     Route: 041
     Dates: start: 20210223
  2. BEVACIZUMAB [Suspect]
     Active Substance: BEVACIZUMAB
     Indication: Hepatocellular carcinoma
     Dosage: NEXT DOSE ON 16/MAR/2021, 05/APR/2021, 27/APR/2021, 18/MAY/2021, 08/JUN/2021, 30/JUN/2021, 30/JUL/20
     Route: 042
     Dates: start: 20210223
  3. URSODIOL [Concomitant]
     Active Substance: URSODIOL
     Dates: start: 20210316
  4. GODEX (SOUTH KOREA) [Concomitant]
     Dates: start: 20210316
  5. LAMINA-G [Concomitant]
     Indication: Gastritis
     Dates: start: 20210614
  6. NEXIUM [Concomitant]
     Active Substance: ESOMEPRAZOLE MAGNESIUM
     Indication: Gastritis
     Dates: start: 20210614
  7. AMLODIPINE [Concomitant]
     Active Substance: AMLODIPINE BESYLATE
     Indication: Hypertension
     Dates: start: 2021
  8. DICHLOZID [Concomitant]
     Indication: Hypertension
     Dates: start: 2021
  9. MYPOL CAPSULES [Concomitant]
     Indication: Cancer pain
     Dates: start: 20210729
  10. LICURE [Concomitant]
     Dates: start: 20210726
  11. CARVEDILOL [Concomitant]
     Active Substance: CARVEDILOL
     Indication: Hypertension
     Dates: start: 20210614
  12. ALBUMIN HUMAN [Concomitant]
     Active Substance: ALBUMIN HUMAN
     Indication: Hypoalbuminaemia
     Dosage: ALBUMIN GREENCROSS INJ 20% 100ML
     Dates: start: 20211005, end: 20211005
  13. ALBUMIN HUMAN [Concomitant]
     Active Substance: ALBUMIN HUMAN
     Dates: start: 20211116, end: 20211116
  14. ALBUMIN HUMAN [Concomitant]
     Active Substance: ALBUMIN HUMAN
     Dates: start: 20211207
  15. ALBUMIN HUMAN [Concomitant]
     Active Substance: ALBUMIN HUMAN
     Dates: start: 20220414, end: 20220414
  16. CETIZAL [Concomitant]
     Indication: Pruritus
     Dates: start: 20211026
  17. FURIX (SOUTH KOREA) [Concomitant]
     Indication: Ascites
     Dates: start: 20220414
  18. ALDACTONE [Concomitant]
     Active Substance: SPIRONOLACTONE
     Indication: Ascites
     Dates: start: 20220414

REACTIONS (3)
  - Ascites [Recovering/Resolving]
  - Hypoalbuminaemia [Recovering/Resolving]
  - Pruritus [Recovering/Resolving]

NARRATIVE: CASE EVENT DATE: 20211004
